FAERS Safety Report 7323231-X (Version None)
Quarter: 2011Q1

REPORT INFORMATION
  Report Type: 
  Country: None (occurrence: None)
  Receive Date: 20110217
  Receipt Date: 20110202
  Transmission Date: 20110831
  Serious: Yes (Other)
  Sender: FDA-Public Use
  Company Number: 025950

PATIENT
  Sex: Male

DRUGS (12)
  1. XYZAL [Suspect]
     Indication: PRURITUS
     Dosage: 5 MG QD, ORAL
     Route: 048
     Dates: start: 20101222, end: 20110111
  2. BLOPRESS [Concomitant]
  3. MAGMITT [Concomitant]
  4. NORVASC [Concomitant]
  5. PREDONINE [Concomitant]
  6. MEDILAC-BEBE [Concomitant]
  7. GASMOTIN [Concomitant]
  8. TELEMINSOFT [Concomitant]
  9. ATARAX [Concomitant]
  10. ZADITEN [Concomitant]
  11. ASPIRIN [Concomitant]
  12. LAXOBERON [Concomitant]

REACTIONS (4)
  - RESTLESSNESS [None]
  - SOMNOLENCE [None]
  - HALLUCINATION [None]
  - INSOMNIA [None]
